FAERS Safety Report 6211131-8 (Version None)
Quarter: 2009Q2

REPORT INFORMATION
  Report Type: 
  Country: None (occurrence: None)
  Receive Date: 20090602
  Receipt Date: 20090526
  Transmission Date: 20091009
  Serious: Yes (Death, Hospitalization)
  Sender: FDA-Public Use
  Company Number: PHHY2009CA20074

PATIENT
  Sex: Male

DRUGS (6)
  1. EXJADE [Suspect]
     Indication: IRON OVERLOAD
     Dosage: 1250 MG, QD
     Route: 048
     Dates: start: 20090403, end: 20090413
  2. GLEEVEC [Suspect]
     Indication: CHRONIC MYELOID LEUKAEMIA
     Dosage: 400 MG, QD
  3. NEXAVAR [Concomitant]
     Dosage: 200 MG, BID
  4. PERCOCET [Concomitant]
     Indication: PAIN
     Dosage: 1-6 TABLETS DAILY, PRN
  5. TRANSFUSIONS [Concomitant]
     Dosage: 1 UNIT OF PACKED CELLS
  6. DILAUDID [Concomitant]

REACTIONS (10)
  - ABDOMINAL DISTENSION [None]
  - DEATH [None]
  - DISEASE PROGRESSION [None]
  - FEBRILE NEUTROPENIA [None]
  - GENERAL PHYSICAL HEALTH DETERIORATION [None]
  - HEPATIC FUNCTION ABNORMAL [None]
  - HEPATIC NECROSIS [None]
  - LEUKOPENIA [None]
  - LIVER PALPABLE SUBCOSTAL [None]
  - PYREXIA [None]
